FAERS Safety Report 20643264 (Version 5)
Quarter: 2023Q1

REPORT INFORMATION
  Report Type: Spontaneous
  Country: US (occurrence: US)
  Receive Date: 20220328
  Receipt Date: 20230221
  Transmission Date: 20230418
  Serious: Yes (Other)
  Sender: FDA-Public Use
  Company Number: US-35507-2022-03909

PATIENT
  Age: 24 Year
  Sex: Female
  Weight: 72.574 kg

DRUGS (1)
  1. MY WAY [Suspect]
     Active Substance: LEVONORGESTREL
     Indication: Contraception
     Dosage: 1.5 MG, SINGLE
     Route: 048
     Dates: start: 202203

REACTIONS (2)
  - Exposure during pregnancy [Unknown]
  - Pregnancy on contraceptive [Unknown]

NARRATIVE: CASE EVENT DATE: 20220314
